FAERS Safety Report 8125253-8 (Version None)
Quarter: 2012Q1

REPORT INFORMATION
  Report Type: 
  Country: None (occurrence: None)
  Receive Date: 20120206
  Receipt Date: 20120120
  Transmission Date: 20120608
  Serious: Yes (Other)
  Sender: FDA-Public Use
  Company Number: 2011HGS-002751

PATIENT
  Age: 32 Year
  Sex: Female
  Weight: 76 kg

DRUGS (1)
  1. BENLYSTA [Suspect]
     Indication: SYSTEMIC LUPUS ERYTHEMATOSUS
     Dosage: 760 MG, 1 IN 2 WK, INTRAVENOUS
     Route: 042
     Dates: start: 20111021

REACTIONS (8)
  - VOMITING [None]
  - ABDOMINAL DISCOMFORT [None]
  - MIGRAINE [None]
  - ALOPECIA [None]
  - INFLUENZA LIKE ILLNESS [None]
  - DIZZINESS [None]
  - IMPAIRED WORK ABILITY [None]
  - VIRAL INFECTION [None]
